FAERS Safety Report 9869308 (Version 5)
Quarter: 2014Q1

REPORT INFORMATION
  Report Type: Report from Study
  Country: US (occurrence: US)
  Receive Date: 20140205
  Receipt Date: 20140303
  Transmission Date: 20141002
  Serious: Yes (Hospitalization, Other)
  Sender: FDA-Public Use
  Company Number: PHEH2014US000838

PATIENT
  Age: 47 Year
  Sex: Male

DRUGS (4)
  1. TASIGNA [Suspect]
     Indication: CHRONIC MYELOID LEUKAEMIA
     Dosage: 150 UG, BID
  2. TASIGNA [Suspect]
     Dosage: 150 MG, BID
     Route: 048
  3. TASIGNA [Suspect]
     Dosage: 150 MG, BID
     Route: 048
  4. BYSTOLIC [Suspect]
     Dosage: UNK

REACTIONS (11)
  - Myocardial infarction [Unknown]
  - Chest pain [Unknown]
  - Pericardial effusion [Unknown]
  - Diabetes mellitus [Unknown]
  - Blood glucose increased [Unknown]
  - Contusion [Unknown]
  - Local swelling [Unknown]
  - Expired drug administered [Unknown]
  - Testicular swelling [Unknown]
  - Hypertension [Unknown]
  - Eye pain [Unknown]
